FAERS Safety Report 7132041-8 (Version None)
Quarter: 2010Q4

REPORT INFORMATION
  Report Type: 
  Country: None (occurrence: None)
  Receive Date: 20101130
  Receipt Date: 20101130
  Transmission Date: 20110411
  Serious: Yes (Death, Hospitalization, Other)
  Sender: FDA-Public Use
  Company Number: None

PATIENT
  Age: 69 Year
  Sex: Female
  Weight: 68.0396 kg

DRUGS (1)
  1. AVANDIA [Suspect]
     Indication: DIABETES MELLITUS
     Dates: start: 19990201, end: 20001026

REACTIONS (4)
  - CEREBROVASCULAR ACCIDENT [None]
  - DIALYSIS [None]
  - MYOCARDIAL INFARCTION [None]
  - RENAL FAILURE [None]
